FAERS Safety Report 15343970 (Version 1)
Quarter: 2018Q3

REPORT INFORMATION
  Report Type: Spontaneous
  Country: US (occurrence: US)
  Receive Date: 20180903
  Receipt Date: 20180903
  Transmission Date: 20181010
  Serious: No
  Sender: FDA-Public Use
  Company Number: US-GLAXOSMITHKLINE-US2018154117

PATIENT
  Sex: Female

DRUGS (3)
  1. ALBUTEROL NEBULIZER [Concomitant]
     Active Substance: ALBUTEROL
  2. INFLUENZA VACCINE SOLUTION FOR INJECTION [Concomitant]
     Active Substance: INFLUENZA VIRUS VACCINE
  3. ANORO ELLIPTA [Suspect]
     Active Substance: UMECLIDINIUM BROMIDE\VILANTEROL TRIFENATATE
     Indication: CHRONIC OBSTRUCTIVE PULMONARY DISEASE
     Dosage: UNK UNK, U
     Route: 055
     Dates: start: 2016

REACTIONS (7)
  - Rhinorrhoea [Recovered/Resolved with Sequelae]
  - Nausea [Recovered/Resolved with Sequelae]
  - Seasonal allergy [Unknown]
  - Nasopharyngitis [Recovered/Resolved with Sequelae]
  - Sneezing [Recovered/Resolved with Sequelae]
  - Increased viscosity of upper respiratory secretion [Recovered/Resolved with Sequelae]
  - Cough [Recovered/Resolved with Sequelae]
